FAERS Safety Report 5594955-X (Version None)
Quarter: 2007Q4

REPORT INFORMATION
  Report Type: 
  Country: None (occurrence: None)
  Receive Date: 20071218
  Receipt Date: 20070503
  Transmission Date: 20080405
  Serious: Yes (Hospitalization, Other)
  Sender: FDA-Public Use
  Company Number: 2007004651

PATIENT
  Age: 51 Year
  Sex: Male
  Weight: 102.1 kg

DRUGS (1)
  1. BEXTRA [Suspect]
     Indication: BACK INJURY
     Dates: start: 20020101

REACTIONS (2)
  - ANXIETY [None]
  - MYOCARDIAL INFARCTION [None]
